FAERS Safety Report 20078969 (Version 1)
Quarter: 2021Q4

REPORT INFORMATION
  Report Type: Spontaneous
  Country: US (occurrence: US)
  Receive Date: 20211117
  Receipt Date: 20211117
  Transmission Date: 20220303
  Serious: No
  Sender: FDA-Public Use
  Company Number: US-TARO-2021TAR00940

PATIENT

DRUGS (1)
  1. TRETINOIN [Suspect]
     Active Substance: TRETINOIN
     Indication: Skin atrophy
     Dosage: EVERY FEW DAYS TOPICALLY ON FACE
     Route: 061
     Dates: start: 202108

REACTIONS (4)
  - Application site pain [Not Recovered/Not Resolved]
  - Application site exfoliation [Not Recovered/Not Resolved]
  - Product use in unapproved indication [Unknown]
  - Product substitution issue [Unknown]
